FAERS Safety Report 21100326 (Version 1)
Quarter: 2022Q3

REPORT INFORMATION
  Report Type: Report from Study
  Country: US (occurrence: None)
  Receive Date: 20220719
  Receipt Date: 20220719
  Transmission Date: 20221026
  Serious: Yes (Hospitalization)
  Sender: FDA-Public Use
  Company Number: US-Eisai Medical Research-EC-2022-118981

PATIENT
  Age: 63 Year
  Sex: Male

DRUGS (1)
  1. LENVIMA [Suspect]
     Active Substance: LENVATINIB
     Indication: Renal cancer
     Route: 048
     Dates: end: 2022

REACTIONS (3)
  - Cerebrovascular accident [Unknown]
  - COVID-19 [Unknown]
  - Renal failure [Unknown]

NARRATIVE: CASE EVENT DATE: 20220101
